FAERS Safety Report 7592272-X (Version None)
Quarter: 2011Q3

REPORT INFORMATION
  Report Type: 
  Country: None (occurrence: None)
  Receive Date: 20110706
  Receipt Date: 20110621
  Transmission Date: 20111222
  Serious: Yes (Hospitalization, Disabling)
  Sender: FDA-Public Use
  Company Number: CA-JNJFOC-20110700951

PATIENT
  Sex: Male
  Weight: 74 kg

DRUGS (14)
  1. PREDNISONE [Concomitant]
  2. MOTILIUM [Concomitant]
     Dates: start: 20090101
  3. ZOPLICONE [Concomitant]
     Dates: start: 20090101
  4. FOSAMAX [Concomitant]
     Dates: start: 20090101
  5. PURINETHOL [Concomitant]
     Dates: start: 20090101
  6. CRESTOR [Concomitant]
     Dates: start: 20110401
  7. HYDROMORPHONE HCL [Concomitant]
     Dosage: TAKEN AS NEEDED
  8. CALCIUM WITH VITAMIN D [Concomitant]
     Dates: start: 20090101
  9. NEXIUM [Concomitant]
     Dates: start: 20090101
  10. FOLIC ACID [Concomitant]
     Dates: start: 20090101
  11. LOPRESSOR [Concomitant]
     Dates: start: 20110401
  12. PENTASA [Concomitant]
     Dates: start: 20090101
  13. ASPIRIN [Concomitant]
     Dates: start: 20110401
  14. REMICADE [Suspect]
     Indication: CROHN'S DISEASE
     Route: 042
     Dates: start: 20061201

REACTIONS (2)
  - POOR PERIPHERAL CIRCULATION [None]
  - LEG AMPUTATION [None]
